FAERS Safety Report 23281686 (Version 1)
Quarter: 2023Q4

REPORT INFORMATION
  Report Type: Spontaneous
  Country: CA (occurrence: CA)
  Receive Date: 20231211
  Receipt Date: 20231211
  Transmission Date: 20240110
  Serious: Yes (Hospitalization)
  Sender: FDA-Public Use
  Company Number: None

PATIENT
  Age: 86 Year
  Sex: Male

DRUGS (1)
  1. DAPTOMYCIN [Suspect]
     Active Substance: DAPTOMYCIN
     Indication: Product used for unknown indication
     Dosage: ROUTE: INTRAVENOUS DRIP, DOSE: 50 MG/ML

REACTIONS (3)
  - Eosinophilic pneumonia [Unknown]
  - Oxygen therapy [Unknown]
  - Respiratory failure [Unknown]
